FAERS Safety Report 20810102 (Version 1)
Quarter: 2022Q2

REPORT INFORMATION
  Report Type: Spontaneous
  Country: US (occurrence: US)
  Receive Date: 20220510
  Receipt Date: 20220510
  Transmission Date: 20220721
  Serious: No
  Sender: FDA-Public Use
  Company Number: US-OYSTER POINT PHARMA, INC.-2022OYS00136

PATIENT
  Sex: Female

DRUGS (3)
  1. TYRVAYA [Suspect]
     Active Substance: VARENICLINE TARTRATE
     Indication: Dry eye
     Dosage: 1 SPRAY IN EACH NOSTRIL, 2X/DAY
     Route: 045
     Dates: start: 20220208, end: 202202
  2. UNSPECIFIED INJECTIONS FOR MACULAR DEGENERATION [Concomitant]
  3. REGENER-EYES [Concomitant]

REACTIONS (6)
  - Drug ineffective [Recovered/Resolved]
  - Eye pain [Not Recovered/Not Resolved]
  - Sjogren^s syndrome [Not Recovered/Not Resolved]
  - Dry eye [Not Recovered/Not Resolved]
  - Therapeutic response unexpected [Unknown]
  - Product administration error [Unknown]

NARRATIVE: CASE EVENT DATE: 20220201
